FAERS Safety Report 7419710-7 (Version None)
Quarter: 2011Q2

REPORT INFORMATION
  Report Type: 
  Country: None (occurrence: None)
  Receive Date: 20110418
  Receipt Date: 20110405
  Transmission Date: 20111010
  Serious: Yes (Hospitalization)
  Sender: FDA-Public Use
  Company Number: IE-ELI_LILLY_AND_COMPANY-IE201103002822

PATIENT
  Sex: Female

DRUGS (6)
  1. ELTROXIN [Concomitant]
  2. FOLIC ACID [Concomitant]
  3. FORTEO [Suspect]
     Indication: OSTEOPOROSIS
     Dosage: 20 UG, UNK
     Dates: start: 20110307
  4. GALFER [Concomitant]
  5. ANTIBIOTICS [Concomitant]
  6. DIOVAN [Concomitant]

REACTIONS (2)
  - OEDEMA PERIPHERAL [None]
  - CELLULITIS [None]
